FAERS Safety Report 7602537-0 (Version None)
Quarter: 2011Q3

REPORT INFORMATION
  Report Type: 
  Country: None (occurrence: None)
  Receive Date: 20110701
  Receipt Date: 20110622
  Transmission Date: 20111222
  Serious: Yes (Death, Other)
  Sender: FDA-Public Use
  Company Number: US-2011-10043

PATIENT
  Age: 68 Year
  Sex: Male

DRUGS (23)
  1. BUSULFAN [Suspect]
     Indication: LYMPHOMA
     Dosage: 73.6 MG MILLIGRAM(S), DAILY DOSE, INTRAVENOUS 298 MG MILLIGRAM(S), DAILY DOSE, INTRAVENOUS
     Route: 042
     Dates: start: 20110112, end: 20110112
  2. BUSULFAN [Suspect]
     Indication: LYMPHOMA
     Dosage: 73.6 MG MILLIGRAM(S), DAILY DOSE, INTRAVENOUS 298 MG MILLIGRAM(S), DAILY DOSE, INTRAVENOUS
     Route: 042
     Dates: start: 20110118, end: 20110121
  3. ETOPOSIDE [Concomitant]
  4. CYCLOPHOSPHAMIDE [Concomitant]
  5. CITALOPRAM HYDROBROMIDE [Concomitant]
  6. LORAZEPAM [Concomitant]
  7. SENNA ALEXANDRIA EXTRACT W/DOCUSATE SODIUM (DOCUSATE SODIUM, SENNOSIDE [Concomitant]
  8. SIMVASTATIN [Concomitant]
  9. AMLODIPINE [Concomitant]
  10. BENADRYL [Concomitant]
  11. ZOCOR [Concomitant]
  12. CEFEPIME (CEFEPIME HYDROCHLORIDE) [Concomitant]
  13. PRILOSEC [Concomitant]
  14. OXYCODONE HCL [Concomitant]
  15. KEPPRA [Concomitant]
  16. TRIMETHOPRIM [Concomitant]
  17. OMEPRAZOLE [Concomitant]
  18. URSODIOL [Concomitant]
  19. ALLOPURINOL [Concomitant]
  20. ADVAIR DISKUS (FLUTICASONE PROPIONATE, SALMETEROL XINAFOATE) [Concomitant]
  21. AMLODIPINE [Concomitant]
  22. TRAZODONE HCL [Concomitant]
  23. FUROSEMIDE [Concomitant]

REACTIONS (17)
  - PULSELESS ELECTRICAL ACTIVITY [None]
  - ANAEMIA [None]
  - VENTRICULAR EXTRASYSTOLES [None]
  - CARDIOMEGALY [None]
  - PULMONARY EMBOLISM [None]
  - HYPOALBUMINAEMIA [None]
  - DELIRIUM [None]
  - SUDDEN CARDIAC DEATH [None]
  - MENTAL STATUS CHANGES [None]
  - CARDIO-RESPIRATORY ARREST [None]
  - MYOCARDIAL ISCHAEMIA [None]
  - DIARRHOEA [None]
  - BLOOD CREATININE INCREASED [None]
  - NEUTROPENIA [None]
  - HEPATOSPLENOMEGALY [None]
  - PSYCHOTIC DISORDER [None]
  - THROMBOCYTOPENIA [None]
